FAERS Safety Report 5796333-7 (Version None)
Quarter: 2008Q2

REPORT INFORMATION
  Report Type: 
  Country: None (occurrence: None)
  Receive Date: 20080630
  Receipt Date: 20080630
  Transmission Date: 20081010
  Serious: No
  Sender: FDA-Public Use
  Company Number: None

PATIENT
  Sex: Female
  Weight: 102.5129 kg

DRUGS (4)
  1. DARVON [Suspect]
     Indication: BACK PAIN
     Dosage: 65 MG ONE QID ORAL
     Route: 048
     Dates: start: 20080201, end: 20080301
  2. DARVON [Suspect]
     Indication: OSTEOARTHRITIS
     Dosage: 65 MG ONE QID ORAL
     Route: 048
     Dates: start: 20080201, end: 20080301
  3. LORCET 7.5MG [Suspect]
     Indication: BACK PAIN
     Dosage: 75 MG ONE BID ORAL
     Route: 048
     Dates: start: 20080301, end: 20080401
  4. LORCET 7.5MG [Suspect]
     Indication: OSTEOARTHRITIS
     Dosage: 75 MG ONE BID ORAL
     Route: 048
     Dates: start: 20080301, end: 20080401

REACTIONS (2)
  - PAIN [None]
  - SEDATION [None]
